FAERS Safety Report 8830158 (Version 1)
Quarter: 2012Q4

REPORT INFORMATION
  Report Type: Spontaneous
  Country: GB (occurrence: None)
  Receive Date: 20121004
  Receipt Date: 20121004
  Transmission Date: 20130627
  Serious: No
  Sender: FDA-Public Use
  Company Number: 2012AP003137

PATIENT
  Age: 1 Day
  Sex: Male

DRUGS (1)
  1. SERTRALINE (SERTRALINE) (SERTRALINE) [Suspect]
     Indication: OBSESSIVE-COMPULSIVE DISORDER
     Route: 064

REACTIONS (3)
  - Congenital eye disorder [None]
  - Coloboma [None]
  - Maternal drugs affecting foetus [None]
